FAERS Safety Report 5647194-8 (Version None)
Quarter: 2008Q1

REPORT INFORMATION
  Report Type: 
  Country: None (occurrence: None)
  Receive Date: 20080228
  Receipt Date: 20080207
  Transmission Date: 20080703
  Serious: Yes (Death)
  Sender: FDA-Public Use
  Company Number: JPKYO-S-20080010

PATIENT
  Sex: Male

DRUGS (5)
  1. NAVELBINE [Suspect]
     Indication: LUNG CARCINOMA CELL TYPE UNSPECIFIED STAGE IV
     Dosage: 0 MG QD IV
     Route: 042
     Dates: start: 20080117, end: 20080124
  2. OXYCONTIN [Concomitant]
  3. LOXONIN [Concomitant]
  4. NOVAMIN [Concomitant]
  5. MAGMITT [Concomitant]

REACTIONS (1)
  - PNEUMONIA [None]
